FAERS Safety Report 5794632-6 (Version None)
Quarter: 2008Q2

REPORT INFORMATION
  Report Type: 
  Country: None (occurrence: None)
  Receive Date: 20080627
  Receipt Date: 20080627
  Transmission Date: 20081010
  Serious: Yes (Death)
  Sender: FDA-Public Use
  Company Number: None

PATIENT
  Age: 27 Year
  Sex: Male
  Weight: 77.1115 kg

DRUGS (3)
  1. ZYPREXA [Suspect]
     Indication: BIPOLAR DISORDER
     Dosage: PILL
     Dates: start: 20040311, end: 20041118
  2. DEPAKOTE [Suspect]
     Indication: BIPOLAR DISORDER
     Dosage: PILL
  3. NEURONTIN [Suspect]

REACTIONS (2)
  - PULMONARY HAEMORRHAGE [None]
  - VIRAL INFECTION [None]
